FAERS Safety Report 18944860 (Version 1)
Quarter: 2021Q1

REPORT INFORMATION
  Report Type: Spontaneous
  Country: US (occurrence: US)
  Receive Date: 20210226
  Receipt Date: 20210226
  Transmission Date: 20210420
  Serious: No
  Sender: FDA-Public Use
  Company Number: US-ELI_LILLY_AND_COMPANY-US202102001593

PATIENT
  Sex: Female

DRUGS (3)
  1. HUMALOG JUNIOR KWIKPEN [Suspect]
     Active Substance: INSULIN LISPRO
     Dosage: 4 U, UNKNOWN (EACH MEAL)
     Route: 058
  2. HUMALOG JUNIOR KWIKPEN [Suspect]
     Active Substance: INSULIN LISPRO
     Dosage: 4 U, UNKNOWN (EACH MEAL)
     Route: 058
  3. HUMALOG JUNIOR KWIKPEN [Suspect]
     Active Substance: INSULIN LISPRO
     Indication: DIABETES MELLITUS
     Dosage: 4 U, UNKNOWN (EACH MEAL)
     Route: 058
     Dates: start: 2017

REACTIONS (2)
  - Incorrect dose administered [Unknown]
  - Blood glucose increased [Recovering/Resolving]
